FAERS Safety Report 4345195-3 (Version None)
Quarter: 2004Q2

REPORT INFORMATION
  Report Type: 
  Country: None (occurrence: None)
  Receive Date: 20040420
  Receipt Date: 20040408
  Transmission Date: 20050107
  Serious: Yes (Other)
  Sender: FDA-Public Use
  Company Number: 2004022609

PATIENT
  Age: 66 Year
  Sex: Female

DRUGS (2)
  1. NORVASC [Suspect]
     Indication: ILL-DEFINED DISORDER
     Dosage: ORAL
     Route: 048
  2. PRAVASTATIN SODIUM [Concomitant]

REACTIONS (2)
  - ALCOHOLIC PANCREATITIS [None]
  - PANCREATITIS ACUTE [None]
